FAERS Safety Report 4796720-X (Version None)
Quarter: 2005Q4

REPORT INFORMATION
  Report Type: 
  Country: None (occurrence: None)
  Receive Date: 20051007
  Receipt Date: 20050802
  Transmission Date: 20060501
  Serious: Yes (Other)
  Sender: FDA-Public Use
  Company Number: 2005110344

PATIENT
  Sex: Female

DRUGS (3)
  1. DOXORUBICIN HCL [Suspect]
     Indication: BREAST CANCER
     Dosage: 60 MG/M*2 (CYCLIC INTERVAL: EVERY TWO WEEKS)
  2. TAXOTERE [Suspect]
     Indication: BREAST CANCER
     Dosage: 75 MG/M*2 (CYCLIC INTERVAL: EVERY TWO WEEKS)
  3. CYCLOPHOSPHAMIDE [Concomitant]

REACTIONS (3)
  - CARDIAC FAILURE [None]
  - COUGH [None]
  - DYSPNOEA EXERTIONAL [None]
